FAERS Safety Report 10625845 (Version 1)
Quarter: 2014Q4

REPORT INFORMATION
  Report Type: Report from Study
  Country: US (occurrence: US)
  Receive Date: 20141204
  Receipt Date: 20141204
  Transmission Date: 20150529
  Serious: Yes (Hospitalization)
  Sender: FDA-Public Use
  Company Number: US-ROCHE-1502133

PATIENT
  Age: 57 Year
  Sex: Female
  Weight: 107 kg

DRUGS (7)
  1. PERTUZUMAB [Suspect]
     Active Substance: PERTUZUMAB
     Dosage: 840 MG, CYCLE 2-6?TOTAL DOSE ADMINISTERED: 420MG
     Route: 042
  2. TRASTUZUMAB [Suspect]
     Active Substance: TRASTUZUMAB
     Indication: BREAST CANCER
     Dosage: 8 MG/KG, CYCLE 1?TOTAL DOSE ADMINISTERED: 642.6MG
     Route: 042
     Dates: start: 20140625
  3. CARBOPLATIN. [Suspect]
     Active Substance: CARBOPLATIN
     Indication: BREAST CANCER
     Dosage: AUC 6MG/ML/MIN, CYCLE 1-6?TOTAL DOSE ADMINISTERED: 669MG
     Route: 042
     Dates: start: 20140625
  4. FEMARA [Concomitant]
     Active Substance: LETROZOLE
     Route: 048
     Dates: start: 20140625
  5. DOCETAXEL. [Suspect]
     Active Substance: DOCETAXEL
     Indication: BREAST CANCER
     Dosage: 75MG/M2, CYCLE 1-6?TOTAL DOSE ADMINISTERED: 137.4MG
     Route: 042
     Dates: start: 20140625
  6. TRASTUZUMAB [Suspect]
     Active Substance: TRASTUZUMAB
     Dosage: 6 MG/KG, CYCLE 2-6
     Route: 042
  7. PERTUZUMAB [Suspect]
     Active Substance: PERTUZUMAB
     Indication: BREAST CANCER
     Dosage: 840 MG, CYCLE 1?TOTAL DOSE ADMINISTERED: 420MG
     Route: 042
     Dates: start: 20140625

REACTIONS (2)
  - Nausea [Recovered/Resolved]
  - Dehydration [Recovered/Resolved]

NARRATIVE: CASE EVENT DATE: 20140917
